FAERS Safety Report 20598016 (Version 1)
Quarter: 2022Q1

REPORT INFORMATION
  Report Type: Spontaneous
  Country: US (occurrence: US)
  Receive Date: 20220315
  Receipt Date: 20220315
  Transmission Date: 20220423
  Serious: No
  Sender: FDA-Public Use
  Company Number: US-PFIZER INC-2021601679

PATIENT
  Age: 79 Year
  Sex: Female

DRUGS (2)
  1. XANAX [Suspect]
     Active Substance: ALPRAZOLAM
     Dosage: 0.5 MG, 4X/DAY
  2. XANAX [Suspect]
     Active Substance: ALPRAZOLAM
     Dosage: TAPERING NEW DOSE
     Dates: start: 20210523

REACTIONS (5)
  - Chest discomfort [Unknown]
  - Anxiety [Unknown]
  - Feeling abnormal [Unknown]
  - Tremor [Unknown]
  - Panic attack [Unknown]
